FAERS Safety Report 9721461 (Version 2)
Quarter: 2013Q4

REPORT INFORMATION
  Report Type: Spontaneous
  Country: JP (occurrence: JP)
  Receive Date: 20131129
  Receipt Date: 20131129
  Transmission Date: 20140711
  Serious: Yes (Hospitalization)
  Sender: FDA-Public Use
  Company Number: JP-TAKEDA-TCI2011A06837

PATIENT
  Age: 66 Year
  Sex: Male
  Weight: 56 kg

DRUGS (10)
  1. NESINA TABLETS 25MG [Suspect]
     Indication: TYPE 2 DIABETES MELLITUS
     Dosage: 25 MG, QD
     Route: 048
     Dates: start: 20111125, end: 20111222
  2. ITOROL [Concomitant]
     Dosage: 40 MG,1 DAYS
     Route: 048
  3. MARZULENE                          /00317302/ [Concomitant]
     Dosage: 4 G, 1 DAYS
     Route: 048
  4. GASTER D [Concomitant]
     Dosage: 40 MG, 1 DAYS
     Route: 048
     Dates: start: 19990521
  5. SELBEX [Concomitant]
     Dosage: 150 MG, 1 DAYS
     Route: 048
     Dates: start: 19990521
  6. ADALAT CR [Concomitant]
     Dosage: 40 MG, 1 DAYS
     Route: 048
     Dates: start: 20090703
  7. AMARYL [Concomitant]
     Dosage: 2 MG, QD
     Route: 048
     Dates: start: 20061228, end: 20111222
  8. AMARYL [Concomitant]
     Dosage: 2.5 MG, QD
     Route: 048
     Dates: start: 20111223
  9. MEVALOTIN [Concomitant]
     Dosage: 10 MG, 1 DAYS
     Route: 048
     Dates: start: 20021205, end: 20090401
  10. MEVALOTIN [Concomitant]
     Dosage: 5 MG, 1 DAYS
     Route: 048
     Dates: start: 20090402

REACTIONS (1)
  - Liver disorder [Recovered/Resolved]
